FAERS Safety Report 6042347-1 (Version None)
Quarter: 2009Q1

REPORT INFORMATION
  Report Type: 
  Country: None (occurrence: None)
  Receive Date: 20090116
  Receipt Date: 20090106
  Transmission Date: 20090719
  Serious: Yes (Other)
  Sender: FDA-Public Use
  Company Number: US-PFIZER INC-2006021457

PATIENT
  Sex: Female

DRUGS (5)
  1. ZOLOFT [Suspect]
     Dosage: UNK
     Route: 048
     Dates: start: 20010101
  2. GEODON [Suspect]
     Dates: start: 20010101
  3. LITHIUM CARBONATE [Concomitant]
     Route: 065
     Dates: start: 19830101
  4. MELLARIL [Concomitant]
     Route: 065
  5. DALMANE [Concomitant]
     Route: 065

REACTIONS (4)
  - BIPOLAR DISORDER [None]
  - DISABILITY [None]
  - HEADACHE [None]
  - MENTAL DISORDER [None]
